FAERS Safety Report 12870212 (Version 1)
Quarter: 2016Q4

REPORT INFORMATION
  Report Type: Spontaneous
  Country: NL (occurrence: NL)
  Receive Date: 20161021
  Receipt Date: 20161021
  Transmission Date: 20170207
  Serious: Yes (Other)
  Sender: FDA-Public Use
  Company Number: NL-AUROBINDO-AUR-APL-2014-01141

PATIENT

DRUGS (4)
  1. PANTOPTRAZOL AUROBINDO MAAGSAPRESISTENTE TABLETTEN 20MG [Suspect]
     Active Substance: PANTOPRAZOLE SODIUM
     Indication: PRODUCT USED FOR UNKNOWN INDICATION
     Dosage: UNK UNK,UNK,,ONE TIME PER DAY 3 PIECE (S) ANTI-PSYCHOTICS 1XPDAG PANTO ES MULTIPLE TIMES)
     Route: 048
     Dates: start: 20050402
  2. ESOMEPRAZOLE [Suspect]
     Active Substance: ESOMEPRAZOLE
     Indication: PRODUCT USED FOR UNKNOWN INDICATION
     Dosage: UNK UNK,UNK,,ONE TIME PER DAY 3 PIECE (S) ANTI-PSYCHOTICS 1XPDAG PANTO ES MULTIPLE TIMES)
     Route: 048
     Dates: start: 20050402
  3. ORAP [Suspect]
     Active Substance: PIMOZIDE
     Indication: PRODUCT USED FOR UNKNOWN INDICATION
     Dosage: UNK UNK,UNK,,ONE TIME PER DAY 3 PIECE (S) ANTI-PSYCHOTICS 1XPDAG PANTO ES MULTIPLE TIMES)
     Route: 048
     Dates: start: 20050402
  4. ABILIFY [Suspect]
     Active Substance: ARIPIPRAZOLE
     Indication: PRODUCT USED FOR UNKNOWN INDICATION
     Dosage: UNK UNK,UNK,,ONE TIME PER DAY 3 PIECE (S) ANTI-PSYCHOTICS 1XPDAG PANTO ES MULTIPLE TIMES)
     Route: 048
     Dates: start: 20050402

REACTIONS (2)
  - Renal impairment [Recovered/Resolved]
  - Back pain [Not Recovered/Not Resolved]

NARRATIVE: CASE EVENT DATE: 20060312
